FAERS Safety Report 18712225 (Version 1)
Quarter: 2021Q1

REPORT INFORMATION
  Report Type: Spontaneous
  Country: US (occurrence: US)
  Receive Date: 20210107
  Receipt Date: 20210107
  Transmission Date: 20210419
  Serious: Yes (Hospitalization)
  Sender: FDA-Public Use
  Company Number: US-MYLANLABS-2021M1000668

PATIENT
  Age: 53 Year
  Sex: Male

DRUGS (2)
  1. VALACICLOVIR [Suspect]
     Active Substance: VALACYCLOVIR HYDROCHLORIDE
     Dosage: 500 MILLIGRAM, QD, DISCHARGED ON VALACICLOVIR 500MG DAILY FOR 7 DAYS.
     Route: 065
  2. VALACICLOVIR [Suspect]
     Active Substance: VALACYCLOVIR HYDROCHLORIDE
     Indication: HERPES ZOSTER
     Dosage: 1 GRAM, TID, 1G THREE TIMES DAILY
     Route: 065

REACTIONS (5)
  - Confusional state [Recovering/Resolving]
  - Agitation [Recovering/Resolving]
  - Neurotoxicity [Recovering/Resolving]
  - Somnolence [Recovering/Resolving]
  - Incorrect dose administered [Unknown]
